FAERS Safety Report 19371922 (Version 1)
Quarter: 2021Q2

REPORT INFORMATION
  Report Type: Spontaneous
  Country: US (occurrence: US)
  Receive Date: 20210604
  Receipt Date: 20210604
  Transmission Date: 20210717
  Serious: No
  Sender: FDA-Public Use
  Company Number: US-ALNYLAM PHARMACEUTICALS, INC.-ALN-2021-001313

PATIENT

DRUGS (1)
  1. ONPATTRO [Suspect]
     Active Substance: PATISIRAN SODIUM
     Indication: AMYLOIDOSIS SENILE
     Dosage: UNK, UNK, UNK
     Route: 042
     Dates: start: 202103

REACTIONS (5)
  - Hypoaesthesia [Unknown]
  - Eye disorder [Unknown]
  - Renal disorder [Unknown]
  - Condition aggravated [Unknown]
  - Pain [Unknown]
